FAERS Safety Report 9431856 (Version 2)
Quarter: 2013Q3

REPORT INFORMATION
  Report Type: Report from Study
  Country: BR (occurrence: BR)
  Receive Date: 20130731
  Receipt Date: 20130805
  Transmission Date: 20140515
  Serious: Yes (Death, Hospitalization, Other)
  Sender: FDA-Public Use
  Company Number: PHHO2013BR008042

PATIENT
  Age: 40 Year
  Sex: Male
  Weight: 52.4 kg

DRUGS (10)
  1. AFINITOR [Suspect]
     Indication: NEUROENDOCRINE TUMOUR
     Dosage: 10 MG, QD
     Route: 048
     Dates: start: 20130502, end: 20130604
  2. AFINITOR [Suspect]
     Dosage: 7.5 MG, DAILY
     Route: 048
     Dates: end: 20130611
  3. UNSPECIFIED INGREDIENT [Suspect]
     Indication: NEUROENDOCRINE CARCINOMA
     Dosage: 10 MG, QD
     Route: 048
     Dates: start: 20130502, end: 20130604
  4. UNSPECIFIED INGREDIENT [Suspect]
     Dosage: 7.5 MG, DAILY
     Route: 048
     Dates: end: 20130611
  5. OMEPRAZOLE [Concomitant]
     Indication: PROPHYLAXIS
     Dosage: 20 MG, BID
     Route: 048
     Dates: start: 201004
  6. ONDANSETRON [Concomitant]
     Indication: NAUSEA
     Dosage: 8 MG, QID
     Route: 048
     Dates: start: 201103, end: 20130604
  7. ONDANSETRON [Concomitant]
     Dosage: 5 MG, BID
     Route: 048
     Dates: start: 20130705
  8. GABAPENTIN [Concomitant]
     Indication: ABDOMINAL PAIN
     Dosage: 300 MG, TID
     Route: 048
     Dates: start: 201103
  9. DIPYRONE [Concomitant]
     Indication: ABDOMINAL PAIN
     Dosage: 100 MG, QID
     Route: 048
     Dates: start: 201103
  10. CODEINE [Concomitant]
     Indication: ABDOMINAL PAIN
     Dosage: 10 MG, BID
     Route: 048
     Dates: start: 20130610, end: 20130610

REACTIONS (11)
  - Renal failure [Fatal]
  - Azotaemia [Fatal]
  - Renal impairment [Not Recovered/Not Resolved]
  - Ascites [Not Recovered/Not Resolved]
  - Abdominal pain lower [Not Recovered/Not Resolved]
  - Oedema peripheral [Not Recovered/Not Resolved]
  - Vomiting [Not Recovered/Not Resolved]
  - Diarrhoea [Not Recovered/Not Resolved]
  - Fatigue [Not Recovered/Not Resolved]
  - Blood creatinine increased [Not Recovered/Not Resolved]
  - Concomitant disease aggravated [Not Recovered/Not Resolved]
